FAERS Safety Report 15632974 (Version 1)
Quarter: 2018Q4

REPORT INFORMATION
  Report Type: Spontaneous
  Country: US (occurrence: US)
  Receive Date: 20181119
  Receipt Date: 20181119
  Transmission Date: 20190205
  Serious: No
  Sender: FDA-Public Use
  Company Number: US-TEVA-2018-US-976265

PATIENT
  Sex: Female

DRUGS (1)
  1. AMOXI CLAVU FOS [Suspect]
     Active Substance: AMOXICILLIN\CLAVULANIC ACID
     Dosage: AMOXICILLIN 400 MG + CLAVULANIC ACID 57 MG PER 5 ML
     Route: 065
     Dates: start: 20181106

REACTIONS (2)
  - Product storage error [Unknown]
  - Abnormal behaviour [Unknown]

NARRATIVE: CASE EVENT DATE: 20181106
